FAERS Safety Report 5082481-6 (Version None)
Quarter: 2006Q3

REPORT INFORMATION
  Report Type: 
  Country: None (occurrence: None)
  Receive Date: 20060817
  Receipt Date: 20060807
  Transmission Date: 20061208
  Serious: Yes (Life-Threatening)
  Sender: FDA-Public Use
  Company Number: FR-BRISTOL-MYERS SQUIBB COMPANY-13468954

PATIENT
  Age: 67 Year
  Sex: Male
  Weight: 80 kg

DRUGS (6)
  1. COUMADIN [Suspect]
     Indication: ATRIAL FLUTTER
     Route: 048
     Dates: start: 20060526, end: 20060602
  2. COUMADIN [Suspect]
     Indication: ATRIAL FIBRILLATION
     Route: 048
     Dates: start: 20060526, end: 20060602
  3. APROVEL TABS 300 MG [Concomitant]
  4. LOXEN [Concomitant]
  5. LASILIX [Concomitant]
  6. DEPAKENE [Concomitant]

REACTIONS (2)
  - COMA [None]
  - SUBDURAL HAEMATOMA [None]
